FAERS Safety Report 9380457 (Version 1)
Quarter: 2013Q2

REPORT INFORMATION
  Report Type: Spontaneous
  Country: AU (occurrence: None)
  Receive Date: 20130628
  Receipt Date: 20130628
  Transmission Date: 20140414
  Serious: Yes (Other)
  Sender: FDA-Public Use
  Company Number: VAL_02601_2013

PATIENT
  Age: 52 Year
  Sex: Male

DRUGS (1)
  1. BROMOCRIPTINE [Suspect]
     Indication: PRODUCT USED FOR UNKNOWN INDICATION
     Dosage: DF

REACTIONS (2)
  - Insulin-like growth factor increased [None]
  - Drug intolerance [None]
